FAERS Safety Report 4957335-3 (Version None)
Quarter: 2006Q1

REPORT INFORMATION
  Report Type: 
  Country: None (occurrence: None)
  Receive Date: 20060327
  Receipt Date: 20060317
  Transmission Date: 20060701
  Serious: Yes (Death, Life-Threatening, Hospitalization)
  Sender: FDA-Public Use
  Company Number: 163-20785-06010368

PATIENT
  Age: 49 Year
  Sex: Female

DRUGS (4)
  1. THALOMID [Suspect]
     Indication: MULTIPLE MYELOMA
     Dosage: 50MG - 150 MG, QHS, ORAL
     Route: 048
     Dates: start: 20050614, end: 20051201
  2. VELCADE [Concomitant]
  3. ARANESP [Concomitant]
  4. ZOMETA [Concomitant]

REACTIONS (9)
  - ANAEMIA [None]
  - DISEASE PROGRESSION [None]
  - DISSEMINATED INTRAVASCULAR COAGULATION [None]
  - INSOMNIA [None]
  - LEUKAEMIA PLASMACYTIC [None]
  - PAIN [None]
  - RENAL FAILURE [None]
  - SUBDURAL HAEMATOMA [None]
  - THROMBOCYTOPENIA [None]
